FAERS Safety Report 5936037-0 (Version None)
Quarter: 2008Q4

REPORT INFORMATION
  Report Type: 
  Country: None (occurrence: None)
  Receive Date: 20081030
  Receipt Date: 20081025
  Transmission Date: 20090506
  Serious: Yes (Hospitalization, Other)
  Sender: FDA-Public Use
  Company Number: US-PFIZER INC-2007039904

PATIENT
  Sex: Female
  Weight: 81.6 kg

DRUGS (10)
  1. CHANTIX [Suspect]
     Indication: SMOKING CESSATION THERAPY
     Dates: start: 20060101
  2. WARFARIN SODIUM [Interacting]
  3. LOPID [Concomitant]
  4. ZOLOFT [Concomitant]
  5. PLAVIX [Concomitant]
  6. FUROSEMIDE [Concomitant]
  7. CRESTOR [Concomitant]
  8. PLETAL [Concomitant]
  9. AMITRIPTYLINE HCL [Concomitant]
  10. LIBRIUM [Concomitant]

REACTIONS (20)
  - ABNORMAL FAECES [None]
  - ARTHRALGIA [None]
  - BACK PAIN [None]
  - CHROMATURIA [None]
  - DRUG INTERACTION [None]
  - DYSPNOEA [None]
  - GAIT DISTURBANCE [None]
  - HYPERHIDROSIS [None]
  - LABORATORY TEST ABNORMAL [None]
  - MITRAL VALVE PROLAPSE [None]
  - MUSCLE SPASMS [None]
  - MUSCULOSKELETAL PAIN [None]
  - MYALGIA [None]
  - NAUSEA [None]
  - NECK PAIN [None]
  - OEDEMA PERIPHERAL [None]
  - PAIN IN EXTREMITY [None]
  - RASH [None]
  - SWELLING [None]
  - TREMOR [None]
